FAERS Safety Report 25056470 (Version 1)
Quarter: 2025Q1

REPORT INFORMATION
  Report Type: Spontaneous
  Country: AR (occurrence: AR)
  Receive Date: 20250310
  Receipt Date: 20250310
  Transmission Date: 20250409
  Serious: Yes (Other)
  Sender: EMD SERONO INC
  Company Number: AR-Merck S.A.-2025009712

PATIENT
  Sex: Male

DRUGS (1)
  1. AVELUMAB [Suspect]
     Active Substance: AVELUMAB
     Indication: Neuroendocrine carcinoma of the skin

REACTIONS (2)
  - Eye disorder [Unknown]
  - IIIrd nerve paralysis [Unknown]
